FAERS Safety Report 5290157-5 (Version None)
Quarter: 2007Q1

REPORT INFORMATION
  Report Type: 
  Country: None (occurrence: None)
  Receive Date: 20070330
  Receipt Date: 20070328
  Transmission Date: 20070707
  Serious: Yes (Other)
  Sender: FDA-Public Use
  Company Number: THQ2007A00245

PATIENT
  Age: 73 Year
  Sex: Female

DRUGS (7)
  1. LANSOPRAZOLE [Suspect]
     Dosage: (15 MG), PER ORAL
     Route: 048
     Dates: start: 20030626, end: 20070101
  2. ALVERINE CITRATE [Suspect]
     Dosage: (120 MG), PER ORAL
     Route: 048
     Dates: start: 19981212, end: 20070101
  3. AMITRIPTYLINE HCL [Concomitant]
  4. DICLOFENAC SODIUM [Concomitant]
  5. GLUCOSAMINE SULPHATE (GLUCOSAMINE) [Concomitant]
  6. SIMVASTATIN [Concomitant]
  7. TRIMETHOPRIM [Concomitant]

REACTIONS (4)
  - EXERCISE TOLERANCE DECREASED [None]
  - GAIT DISTURBANCE [None]
  - MYALGIA [None]
  - PAIN IN EXTREMITY [None]
